FAERS Safety Report 8365397-9 (Version None)
Quarter: 2012Q2

REPORT INFORMATION
  Report Type: 
  Country: None (occurrence: None)
  Receive Date: 20120516
  Receipt Date: 20120510
  Transmission Date: 20120825
  Serious: Yes (Other)
  Sender: FDA-Public Use
  Company Number: CHPA2012US010072

PATIENT
  Sex: Female

DRUGS (1)
  1. NICOTINE [Suspect]
     Indication: SMOKING CESSATION THERAPY
     Dosage: 21 MG, QD
     Route: 062
     Dates: start: 20120312

REACTIONS (6)
  - ABNORMAL DREAMS [None]
  - CHRONIC OBSTRUCTIVE PULMONARY DISEASE [None]
  - WHEEZING [None]
  - MALAISE [None]
  - DYSPNOEA [None]
  - EMPHYSEMA [None]
